FAERS Safety Report 6903482-6 (Version None)
Quarter: 2010Q3

REPORT INFORMATION
  Report Type: 
  Country: None (occurrence: None)
  Receive Date: 20100803
  Receipt Date: 20081104
  Transmission Date: 20110219
  Serious: No
  Sender: FDA-Public Use
  Company Number: US-PFIZER INC-2008085433

PATIENT
  Sex: Female
  Weight: 76.4 kg

DRUGS (4)
  1. LYRICA [Suspect]
     Indication: FIBROMYALGIA
     Dates: start: 20080820
  2. LYRICA [Suspect]
     Indication: POST HERPETIC NEURALGIA
  3. CYMBALTA [Concomitant]
  4. AMBIEN [Concomitant]

REACTIONS (6)
  - COLD SWEAT [None]
  - DIZZINESS [None]
  - DRUG INEFFECTIVE [None]
  - FALL [None]
  - MIDDLE INSOMNIA [None]
  - VISUAL IMPAIRMENT [None]
